FAERS Safety Report 5561578-8 (Version None)
Quarter: 2007Q4

REPORT INFORMATION
  Report Type: 
  Country: None (occurrence: None)
  Receive Date: 20071215
  Receipt Date: 20071016
  Transmission Date: 20080405
  Serious: No
  Sender: FDA-Public Use
  Company Number: US-AMGEN-KDL248370

PATIENT
  Sex: Female

DRUGS (2)
  1. ENBREL [Suspect]
     Indication: RHEUMATOID ARTHRITIS
     Route: 058
     Dates: start: 20070816
  2. METHOTREXATE [Concomitant]
     Dates: start: 19970101

REACTIONS (7)
  - COUGH [None]
  - INJECTION SITE ERYTHEMA [None]
  - INJECTION SITE PAIN [None]
  - INJECTION SITE WARMTH [None]
  - PHARYNGOLARYNGEAL PAIN [None]
  - RESPIRATORY TRACT CONGESTION [None]
  - RHEUMATOID ARTHRITIS [None]
